FAERS Safety Report 8539672-9 (Version None)
Quarter: 2012Q3

REPORT INFORMATION
  Report Type: 
  Country: None (occurrence: None)
  Receive Date: 20120726
  Receipt Date: 20110720
  Transmission Date: 20120928
  Serious: No
  Sender: FDA-Public Use
  Company Number: US-ASTRAZENECA-2009SE22182

PATIENT
  Age: 552 Month
  Sex: Female
  Weight: 82.1 kg

DRUGS (20)
  1. GEODON [Concomitant]
     Dates: start: 20070101
  2. ZITHROMAX [Concomitant]
     Dates: start: 20010625
  3. ALDACTONE [Concomitant]
     Dates: start: 20060909
  4. WELLBUTRIN [Concomitant]
     Dates: start: 20060909
  5. LOPID [Concomitant]
     Dates: start: 20060909
  6. TOPAMAX [Concomitant]
     Dosage: 25 MG TO 100 MG
     Dates: start: 20010430
  7. LYRICA [Concomitant]
     Dates: start: 20060909
  8. ALLEGRA [Concomitant]
     Dates: start: 20010625
  9. OXYCONTIN [Concomitant]
     Dates: start: 20060909
  10. SEROQUEL [Suspect]
     Dosage: 100 MG TO 300 MG
     Route: 048
     Dates: start: 20010430
  11. HYDROXYZINE HCL [Concomitant]
     Dosage: 25-50 MG
     Dates: start: 20010430
  12. SEROQUEL [Suspect]
     Indication: DEPRESSION
     Route: 048
     Dates: start: 20010101, end: 20051101
  13. PLAVIX [Concomitant]
     Dates: start: 20060909
  14. ASPIRIN [Concomitant]
     Dates: start: 20060909
  15. GEODON [Concomitant]
     Dates: start: 20060909
  16. CYCLOBENAZPRINE [Concomitant]
     Dates: start: 20000728
  17. LORAZEPAM [Concomitant]
     Dates: start: 20010216
  18. EFFEXOR XR [Concomitant]
     Dates: start: 20010430
  19. TRIHEXYPHENIDYL HCL [Concomitant]
     Dates: start: 20010430
  20. PLETAL [Concomitant]
     Dates: start: 20060909

REACTIONS (3)
  - OBESITY [None]
  - ADVERSE DRUG REACTION [None]
  - TYPE 2 DIABETES MELLITUS [None]
